FAERS Safety Report 25771924 (Version 1)
Quarter: 2025Q3

REPORT INFORMATION
  Report Type: Spontaneous
  Country: ID (occurrence: SG)
  Receive Date: 20250908
  Receipt Date: 20250908
  Transmission Date: 20251020
  Serious: Yes (Death, Other)
  Sender: GLAXOSMITHKLINE
  Company Number: ID-GSK-ID2025GSK113557

PATIENT
  Age: 65 Year
  Sex: Female

DRUGS (2)
  1. VENTOLIN [Suspect]
     Active Substance: ALBUTEROL SULFATE
     Indication: Asthma
  2. METHYLPREDNISOLONE [Suspect]
     Active Substance: METHYLPREDNISOLONE
     Indication: Asthma

REACTIONS (8)
  - Kounis syndrome [Unknown]
  - Drug hypersensitivity [Unknown]
  - Cardiac failure [Fatal]
  - Cardiac arrest [Fatal]
  - Respiratory distress [Unknown]
  - Condition aggravated [Unknown]
  - Loss of consciousness [Recovering/Resolving]
  - Anaphylactic shock [Unknown]
